FAERS Safety Report 8456723-0 (Version None)
Quarter: 2012Q2

REPORT INFORMATION
  Report Type: 
  Country: None (occurrence: None)
  Receive Date: 20120621
  Receipt Date: 20120615
  Transmission Date: 20120825
  Serious: Yes (Death, Life-Threatening)
  Sender: FDA-Public Use
  Company Number: JP-ASTRAZENECA-2012SE34147

PATIENT
  Age: 20 Year
  Sex: Female

DRUGS (21)
  1. ANTI-THYMOCYTE GLOBULIN RABBIT NOS [Suspect]
     Route: 065
     Dates: start: 20110913
  2. SANDIMMUNE [Concomitant]
     Indication: PROPHYLAXIS AGAINST GRAFT VERSUS HOST DISEASE
     Dates: start: 20110920, end: 20111017
  3. NEUART [Concomitant]
     Indication: ANTITHROMBIN III DECREASED
     Dates: start: 20111019, end: 20111019
  4. CONCENTRATED HUMAN BLOOD PLATELET [Concomitant]
     Dates: start: 20110505, end: 20110505
  5. GRAN [Concomitant]
     Indication: NEUTROPENIA
     Dates: start: 20110922, end: 20111020
  6. MORPHINE HYDROCHLORIDE HYDRATE [Concomitant]
     Indication: STOMATITIS
     Dates: start: 20110927, end: 20111019
  7. LASIX [Concomitant]
     Indication: VENOOCCLUSIVE LIVER DISEASE
     Dates: start: 20111001, end: 20111019
  8. LEVOFLOXACIN [Concomitant]
     Indication: FEBRILE NEUTROPENIA
     Dates: start: 20111018, end: 20111020
  9. COTRIM [Concomitant]
     Indication: PNEUMOCYSTIS JIROVECI PNEUMONIA
     Route: 048
     Dates: start: 20110911, end: 20110920
  10. INOVAN [Concomitant]
     Indication: VENOOCCLUSIVE LIVER DISEASE
     Dates: start: 20111009, end: 20111020
  11. CIPROFLOXACIN [Concomitant]
     Indication: FEBRILE NEUTROPENIA
     Dates: start: 20111015, end: 20111018
  12. ALBUMIN (HUMAN) [Concomitant]
     Indication: HYPOALBUMINAEMIA
     Dates: start: 20111019, end: 20111019
  13. MEROPENEM [Suspect]
     Indication: FEBRILE NEUTROPENIA
     Route: 042
     Dates: start: 20110924, end: 20111015
  14. ACICLOVIN [Concomitant]
     Indication: HERPES ZOSTER
     Route: 048
     Dates: start: 20110913, end: 20110929
  15. VANCOMYCIN HYDROCHLORIDE [Concomitant]
     Indication: FEBRILE NEUTROPENIA
     Dates: start: 20110927, end: 20111017
  16. AMBISOME [Suspect]
     Indication: FEBRILE NEUTROPENIA
     Route: 065
     Dates: start: 20111001, end: 20111015
  17. FLUDARA [Suspect]
     Route: 065
     Dates: start: 20110913
  18. ALKERAN [Suspect]
     Route: 065
     Dates: start: 20110913
  19. CONCENTRATED HUMAN RED BLOOD CELLS [Concomitant]
     Dates: start: 20110423, end: 20110423
  20. HEPAGUMIN [Concomitant]
     Indication: VENOOCCLUSIVE LIVER DISEASE
     Dates: start: 20110912, end: 20110926
  21. LANSOPRAZOLE [Concomitant]
     Indication: GASTROOESOPHAGEAL REFLUX PROPHYLAXIS
     Dates: start: 20110929, end: 20111020

REACTIONS (2)
  - HEPATIC FUNCTION ABNORMAL [None]
  - SHOCK HAEMORRHAGIC [None]
